FAERS Safety Report 25643625 (Version 1)
Quarter: 2025Q3

REPORT INFORMATION
  Report Type: Other
  Country: EU (occurrence: EU)
  Receive Date: 20250805
  Receipt Date: 20250805
  Transmission Date: 20251020
  Serious: Yes (Death)
  Sender: ALVOGEN
  Company Number: EU-ALVOGEN-2025098461

PATIENT
  Age: 19 Year
  Sex: Female

DRUGS (6)
  1. DEXTROAMPHETAMINE SACCHARATE, AMPHETAMINE ASPARTATE, DEXTROAMPHETAMINE [Suspect]
     Active Substance: AMPHETAMINE ASPARTATE\AMPHETAMINE SULFATE\DEXTROAMPHETAMINE SACCHARATE\DEXTROAMPHETAMINE SULFATE
     Indication: Suicide attempt
     Route: 048
  2. SODIUM NITRATE [Suspect]
     Active Substance: SODIUM NITRATE
     Indication: Suicide attempt
     Route: 048
  3. SODIUM NITRITE [Suspect]
     Active Substance: SODIUM NITRITE
     Indication: Suicide attempt
     Route: 048
  4. ETHYL ALCOHOL [Suspect]
     Active Substance: ALCOHOL
     Indication: Suicide attempt
     Route: 048
  5. ATROPINE [Suspect]
     Active Substance: ATROPINE
     Indication: Suicide attempt
     Route: 048
  6. QUETIAPINE [Suspect]
     Active Substance: QUETIAPINE
     Indication: Suicide attempt
     Route: 048

REACTIONS (8)
  - Multiple organ dysfunction syndrome [Fatal]
  - Methaemoglobinaemia [Fatal]
  - Hypoxia [Fatal]
  - Completed suicide [Fatal]
  - Toxicity to various agents [Fatal]
  - Respiratory distress [Fatal]
  - Brain oedema [Fatal]
  - Pulmonary oedema [Fatal]
